FAERS Safety Report 7276118-5 (Version None)
Quarter: 2011Q1

REPORT INFORMATION
  Report Type: 
  Country: None (occurrence: None)
  Receive Date: 20110204
  Receipt Date: 20110125
  Transmission Date: 20110831
  Serious: Yes (Hospitalization)
  Sender: FDA-Public Use
  Company Number: PHHO2009DE05133

PATIENT
  Sex: Male
  Weight: 98 kg

DRUGS (6)
  1. SANDIMMUNE [Suspect]
     Indication: RENAL TRANSPLANT
     Dosage: 220 MG, BID
     Route: 048
     Dates: start: 20090301, end: 20090505
  2. MYFORTIC [Suspect]
     Indication: RENAL TRANSPLANT
     Dosage: 1440 MG, BID
     Route: 048
     Dates: start: 20090301, end: 20090424
  3. NO TREATMENT RECEIVED [Suspect]
     Indication: RENAL TRANSPLANT
     Dosage: NO TREATMENT
  4. URBASON [Concomitant]
     Indication: RENAL TRANSPLANT
     Dosage: 4 MG, QD
     Route: 048
     Dates: start: 20090301
  5. MYFORTIC [Suspect]
     Dosage: 720 MG, BID
     Route: 048
     Dates: start: 20090504, end: 20090612
  6. PROGRAF [Suspect]
     Indication: RENAL TRANSPLANT
     Dosage: 9 MG, BID
     Route: 048
     Dates: start: 20090506

REACTIONS (6)
  - PYELOCALIECTASIS [None]
  - URETHRAL STENT INSERTION [None]
  - KIDNEY TRANSPLANT REJECTION [None]
  - LEUKOCYTOSIS [None]
  - URINARY TRACT OBSTRUCTION [None]
  - BLOOD CREATININE INCREASED [None]
